FAERS Safety Report 15847384 (Version 1)
Quarter: 2019Q1

REPORT INFORMATION
  Report Type: Report from Study
  Country: US (occurrence: US)
  Receive Date: 20190121
  Receipt Date: 20190121
  Transmission Date: 20190417
  Serious: Yes (Hospitalization)
  Sender: FDA-Public Use
  Company Number: US-ROCHE-2245426

PATIENT
  Sex: Female
  Weight: 81.72 kg

DRUGS (5)
  1. FUROSEMIDE. [Concomitant]
     Active Substance: FUROSEMIDE
     Dosage: ONGOING: UNKNOWN
     Route: 048
     Dates: start: 20170202
  2. ERIVEDGE [Suspect]
     Active Substance: VISMODEGIB
     Indication: BASAL CELL CARCINOMA
     Route: 048
     Dates: start: 20170117
  3. SAVELLA [Concomitant]
     Active Substance: MILNACIPRAN HYDROCHLORIDE
     Dosage: ONGOING: UNKNOWN
     Route: 048
     Dates: start: 20170202
  4. OMEPRAZOLE. [Concomitant]
     Active Substance: OMEPRAZOLE
     Dosage: ONGOING: UNKNOWN
     Route: 048
     Dates: start: 20170202
  5. TOPAMAX [Concomitant]
     Active Substance: TOPIRAMATE
     Dosage: ONGOING: UNKNOWN
     Route: 048
     Dates: start: 20170202

REACTIONS (2)
  - Vomiting [Unknown]
  - Headache [Unknown]
